FAERS Safety Report 19050816 (Version 1)
Quarter: 2021Q1

REPORT INFORMATION
  Report Type: Spontaneous
  Country: US (occurrence: US)
  Receive Date: 20210324
  Receipt Date: 20210324
  Transmission Date: 20210420
  Serious: Yes (Hospitalization, Other)
  Sender: FDA-Public Use
  Company Number: US-APOTEX-2021AP006774

PATIENT
  Age: 34 Year
  Sex: Female

DRUGS (1)
  1. ALBUTEROL. [Suspect]
     Active Substance: ALBUTEROL
     Indication: PRODUCT USED FOR UNKNOWN INDICATION
     Dosage: UNK
     Route: 065

REACTIONS (9)
  - Drug level above therapeutic [Recovering/Resolving]
  - Mydriasis [Recovering/Resolving]
  - Hypokalaemia [Recovering/Resolving]
  - Resting tremor [Recovering/Resolving]
  - Munchausen^s syndrome [Unknown]
  - Lactic acidosis [Recovering/Resolving]
  - Palpitations [Recovering/Resolving]
  - Drug abuse [Unknown]
  - Sinus tachycardia [Recovering/Resolving]
